FAERS Safety Report 9681786 (Version 2)
Quarter: 2014Q1

REPORT INFORMATION
  Report Type: Spontaneous
  Country: FR (occurrence: FR)
  Receive Date: 20131111
  Receipt Date: 20140114
  Transmission Date: 20141002
  Serious: Yes (Other)
  Sender: FDA-Public Use
  Company Number: FR-PFIZER INC-2013319754

PATIENT
  Age: 88 Year
  Sex: Female
  Weight: 50 kg

DRUGS (9)
  1. LYRICA [Suspect]
     Indication: NEURALGIA
     Dosage: 25 MG, 1X/DAY DURING 3 DAYS
  2. LYRICA [Suspect]
     Dosage: 25 MG, 2X/DAY DURING 3 DAYS
  3. LYRICA [Suspect]
     Dosage: 25 MG, 3X/DAY DURING 1 MONTH
  4. LYRICA [Suspect]
     Dosage: 50 MG, 3X/DAY
     Route: 048
     Dates: start: 20130503, end: 20131030
  5. SEROPRAM [Suspect]
     Indication: DEPRESSION
     Dosage: 10 MG, 1X/DAY IN THE EVENING
     Route: 048
     Dates: start: 20130705, end: 20131205
  6. PRAZEPAM [Concomitant]
     Indication: ANXIETY
     Dosage: 5 MG, 1X/DAY
     Route: 048
     Dates: start: 20130206
  7. PARACETAMOL [Concomitant]
     Indication: PAIN
     Dosage: 0.5 G, 3X/DAY
     Route: 048
     Dates: start: 20130503
  8. OROCAL D3 [Concomitant]
     Indication: OSTEOPENIA
     Dosage: 1000 MG/400 U DAILY DIVIDED IN TWO INTAKE
     Route: 048
     Dates: start: 20130705
  9. IDARAC [Concomitant]
     Indication: PAIN
     Dosage: 200 MG, 3X/DAY
     Route: 048
     Dates: start: 20130705

REACTIONS (11)
  - Visual acuity reduced [Recovered/Resolved]
  - Vision blurred [Recovered/Resolved]
  - Dysgraphia [Unknown]
  - Nervousness [Recovered/Resolved]
  - Anxiety [Recovered/Resolved]
  - Tremor [Unknown]
  - Hyperacusis [Recovered/Resolved]
  - Photophobia [Recovered/Resolved]
  - Tremor [Unknown]
  - Diarrhoea [Recovered/Resolved]
  - Muscle spasms [Unknown]
